FAERS Safety Report 22174227 (Version 2)
Quarter: 2023Q2

REPORT INFORMATION
  Report Type: Report from Study
  Country: US (occurrence: US)
  Receive Date: 20230405
  Receipt Date: 20230406
  Transmission Date: 20230722
  Serious: Yes (Hospitalization, Other)
  Sender: FDA-Public Use
  Company Number: US-ABBVIE-4715832

PATIENT
  Sex: Male

DRUGS (2)
  1. DUOPA [Suspect]
     Active Substance: CARBIDOPA\LEVODOPA
     Indication: Parkinson^s disease
     Dosage: FORM STRENGTH 100 MILLIGRAM?MORNING DOSE 20 ML (0-20 ML), CONTINUOUS DOSE 6.8 ML/HR (0-8 ML) , EX...
     Route: 050
     Dates: start: 20221206
  2. DUOPA [Suspect]
     Active Substance: CARBIDOPA\LEVODOPA
     Dosage: 4.63-20MG?FORM STRENGTH 100 MILLIGRAM?MORNING DOSE 20 ML (0-20 ML), CONTINUOUS DOSE 6.8 ML/HR (0-...
     Route: 050
     Dates: start: 20221121

REACTIONS (2)
  - Intestinal obstruction [Unknown]
  - Faecal vomiting [Unknown]
